FAERS Safety Report 5698598-9 (Version None)
Quarter: 2008Q2

REPORT INFORMATION
  Report Type: 
  Country: None (occurrence: None)
  Receive Date: 20080403
  Receipt Date: 20080321
  Transmission Date: 20081010
  Serious: Yes (Death, Other)
  Sender: FDA-Public Use
  Company Number: 2008000665

PATIENT
  Age: 61 Year
  Sex: Male

DRUGS (3)
  1. ERLOTINIB (ERLOTINIB HCL) (ERLOTINIB HCL) [Suspect]
     Indication: PANCREATIC CARCINOMA METASTATIC
  2. BEVACIZUMAB [Suspect]
     Indication: PANCREATIC CARCINOMA METASTATIC
     Dosage: (10 MG/KG, Q2W)
  3. GEMCITABINE [Suspect]
     Indication: PANCREATIC CARCINOMA METASTATIC

REACTIONS (5)
  - GENERALISED OEDEMA [None]
  - INJURY [None]
  - MALIGNANT NEOPLASM PROGRESSION [None]
  - THROMBOTIC MICROANGIOPATHY [None]
  - URINE OUTPUT DECREASED [None]
